FAERS Safety Report 24219569 (Version 1)
Quarter: 2024Q3

REPORT INFORMATION
  Report Type: Spontaneous
  Country: US (occurrence: US)
  Receive Date: 20240816
  Receipt Date: 20240816
  Transmission Date: 20241016
  Serious: Yes (Other)
  Sender: ELI LILLY AND CO
  Company Number: US-ELI_LILLY_AND_COMPANY-US202408007489

PATIENT
  Age: 53 Year

DRUGS (2)
  1. MOUNJARO [Suspect]
     Active Substance: TIRZEPATIDE
     Indication: Type 2 diabetes mellitus
     Dosage: UNK UNK, UNKNOWN
     Route: 065
     Dates: start: 202310, end: 202311
  2. OZEMPIC [Suspect]
     Active Substance: SEMAGLUTIDE
     Indication: Product used for unknown indication
     Dosage: UNK UNK, UNKNOWN
     Dates: start: 202206, end: 202310

REACTIONS (6)
  - Intestinal obstruction [Unknown]
  - Ileus [Unknown]
  - Impaired gastric emptying [Unknown]
  - Vomiting [Unknown]
  - Constipation [Unknown]
  - Abdominal pain [Unknown]
